FAERS Safety Report 10039435 (Version 1)
Quarter: 2014Q1

REPORT INFORMATION
  Report Type: Spontaneous
  Country: GB (occurrence: GB)
  Receive Date: 20140326
  Receipt Date: 20140326
  Transmission Date: 20141002
  Serious: Yes (Other)
  Sender: FDA-Public Use
  Company Number: GB-BAYER-2014-043928

PATIENT
  Sex: Female

DRUGS (1)
  1. CANESTEN 500MG VAGINAL PESSARY [Suspect]
     Indication: CANDIDA INFECTION
     Dosage: UNK UNK, ONCE
     Route: 067
     Dates: start: 20140301, end: 20140301

REACTIONS (1)
  - Anaphylactic reaction [Recovered/Resolved]
